FAERS Safety Report 5348548-X (Version None)
Quarter: 2007Q2

REPORT INFORMATION
  Report Type: 
  Country: None (occurrence: None)
  Receive Date: 20070606
  Receipt Date: 20070527
  Transmission Date: 20071010
  Serious: Yes (Other)
  Sender: FDA-Public Use
  Company Number: GB-PFIZER INC-2007044180

PATIENT
  Sex: Female

DRUGS (3)
  1. EXUBERA [Suspect]
     Indication: DIABETES MELLITUS
     Dosage: DAILY DOSE:6MG
     Route: 055
  2. GABAPENTIN [Concomitant]
  3. CODEINE PHOSPHATE AND ACETAMINOPHEN [Concomitant]

REACTIONS (6)
  - ABDOMINAL PAIN UPPER [None]
  - APHONIA [None]
  - DRY THROAT [None]
  - ORAL MUCOSAL EXFOLIATION [None]
  - PHARYNGOLARYNGEAL PAIN [None]
  - RETCHING [None]
